FAERS Safety Report 19308785 (Version 1)
Quarter: 2021Q2

REPORT INFORMATION
  Report Type: Spontaneous
  Country: ES (occurrence: ES)
  Receive Date: 20210526
  Receipt Date: 20210526
  Transmission Date: 20210717
  Serious: Yes (Hospitalization, Other)
  Sender: FDA-Public Use
  Company Number: ES-009507513-2105ESP004946

PATIENT
  Age: 75 Year
  Sex: Female

DRUGS (6)
  1. PEMBROLIZUMAB. [Suspect]
     Active Substance: PEMBROLIZUMAB
     Indication: METASTATIC MALIGNANT MELANOMA
  2. PEMBROLIZUMAB. [Suspect]
     Active Substance: PEMBROLIZUMAB
     Indication: MALIGNANT MELANOMA
  3. IPILIMUMAB [Suspect]
     Active Substance: IPILIMUMAB
     Indication: METASTATIC MALIGNANT MELANOMA
  4. PEMBROLIZUMAB. [Suspect]
     Active Substance: PEMBROLIZUMAB
     Indication: SUPERFICIAL SPREADING MELANOMA STAGE III
     Dosage: 2 MG/KG IV EVERY 21 DAYS; 2 DOSES
     Route: 042
     Dates: start: 2016
  5. IPILIMUMAB [Suspect]
     Active Substance: IPILIMUMAB
     Indication: MALIGNANT MELANOMA
  6. IPILIMUMAB [Suspect]
     Active Substance: IPILIMUMAB
     Indication: SUPERFICIAL SPREADING MELANOMA STAGE IV
     Dosage: 3 MG/KG IV EVERY 21 DAYS; 1 DOSE
     Route: 042
     Dates: start: 201703

REACTIONS (2)
  - Immune-mediated hypophysitis [Unknown]
  - Immune-mediated encephalitis [Unknown]

NARRATIVE: CASE EVENT DATE: 2017
